FAERS Safety Report 8911531 (Version 2)
Quarter: 2012Q4

REPORT INFORMATION
  Report Type: 
  Country: DE (occurrence: LB)
  Receive Date: 20121116
  Receipt Date: 20121204
  Transmission Date: 20130627
  Serious: Yes (Death, Other)
  Sender: FDA-Public Use
  Company Number: LB-FRI-1000040445

PATIENT
  Age: 70 Year
  Sex: Male
  Weight: 65 kg

DRUGS (8)
  1. ROFLUMILAST [Suspect]
     Indication: CHRONIC OBSTRUCTIVE PULMONARY DISEASE
     Route: 048
     Dates: start: 201112
  2. LONG-ACTING MUSCARINIC ANTAGONIST [Concomitant]
  3. LONG-ACTING BETA 2 AGONIST [Concomitant]
  4. INHALED CORTICOSTEROID [Concomitant]
  5. OXYGEN [Concomitant]
     Indication: CHRONIC OBSTRUCTIVE PULMONARY DISEASE
  6. SYMBICORT [Concomitant]
     Indication: CHRONIC OBSTRUCTIVE PULMONARY DISEASE
  7. SPIRIVA [Concomitant]
  8. SINTROM [Concomitant]

REACTIONS (2)
  - Death [Fatal]
  - Weight decreased [Unknown]
